FAERS Safety Report 6404791-X (Version None)
Quarter: 2009Q4

REPORT INFORMATION
  Report Type: 
  Country: None (occurrence: None)
  Receive Date: 20091016
  Receipt Date: 20091008
  Transmission Date: 20100525
  Serious: Yes (Hospitalization)
  Sender: FDA-Public Use
  Company Number: PHHO2008JP15286

PATIENT
  Sex: Male
  Weight: 54 kg

DRUGS (11)
  1. RAD 666 RAD+TAB+PTR [Suspect]
     Indication: RENAL TRANSPLANT
     Dosage: 1.5 MG, DAILY
     Route: 048
     Dates: start: 20081016, end: 20081020
  2. RAD 666 RAD+TAB+PTR [Suspect]
     Dosage: 3 MG, DAILY
     Route: 048
     Dates: start: 20081021
  3. NEORAL [Suspect]
     Indication: RENAL TRANSPLANT
     Dosage: 160 MG, DAILY
     Route: 048
     Dates: start: 20081219
  4. NEORAL [Suspect]
     Dosage: 150MG/DAY
     Route: 048
  5. SIMULECT [Suspect]
     Route: 042
  6. PREDONINE [Suspect]
     Indication: RENAL TRANSPLANT
     Dosage: 10 MG, DAILY
     Route: 048
     Dates: start: 20081110
  7. NORVASC [Concomitant]
     Indication: HYPERTENSION
  8. PARIET [Concomitant]
     Indication: GASTRITIS PROPHYLAXIS
  9. NEGMIN [Concomitant]
     Indication: INFECTION PROPHYLAXIS
  10. LIPITOR [Concomitant]
     Indication: HYPERLIPIDAEMIA
     Dosage: UNK
     Dates: start: 20090326
  11. BLOPRESS [Concomitant]
     Indication: HYPERTENSION

REACTIONS (7)
  - BLOOD CREATININE INCREASED [None]
  - NEPHROPATHY TOXIC [None]
  - OROPHARYNGEAL PAIN [None]
  - POST PROCEDURAL DISCOMFORT [None]
  - PYREXIA [None]
  - THERAPEUTIC AGENT TOXICITY [None]
  - UPPER RESPIRATORY TRACT INFECTION [None]
